FAERS Safety Report 6303792-X (Version None)
Quarter: 2009Q3

REPORT INFORMATION
  Report Type: 
  Country: None (occurrence: None)
  Receive Date: 20090805
  Receipt Date: 20090723
  Transmission Date: 20100115
  Serious: Yes (Other)
  Sender: FDA-Public Use
  Company Number: 2009002263

PATIENT
  Sex: Female

DRUGS (1)
  1. MACUGEN [Suspect]
     Dosage: INTRA-VITREAL

REACTIONS (5)
  - BLINDNESS UNILATERAL [None]
  - INJECTION SITE PAIN [None]
  - OEDEMA [None]
  - PALPITATIONS [None]
  - VISUAL ACUITY REDUCED [None]
